FAERS Safety Report 8270034-8 (Version None)
Quarter: 2012Q2

REPORT INFORMATION
  Report Type: 
  Country: None (occurrence: None)
  Receive Date: 20120410
  Receipt Date: 20120404
  Transmission Date: 20120825
  Serious: Yes (Hospitalization, Other)
  Sender: FDA-Public Use
  Company Number: US-AMGEN-USASP2011021923

PATIENT
  Age: 64 Year
  Sex: Female
  Weight: 102 kg

DRUGS (3)
  1. ENBREL [Suspect]
     Indication: RHEUMATOID ARTHRITIS
     Dosage: 50 MG, QWK
     Dates: start: 20090105
  2. METHOTREXATE [Concomitant]
     Dosage: 20 MG, QWK
  3. PREDNISONE TAB [Concomitant]
     Dosage: 5 MG, QD

REACTIONS (12)
  - STAPHYLOCOCCAL INFECTION [None]
  - TOOTH DISORDER [None]
  - BURSITIS [None]
  - DEFORMITY [None]
  - FALL [None]
  - BACK PAIN [None]
  - OSTEOARTHRITIS [None]
  - PAIN IN EXTREMITY [None]
  - LOCALISED INFECTION [None]
  - OEDEMA PERIPHERAL [None]
  - LUMBAR VERTEBRAL FRACTURE [None]
  - MOUTH ULCERATION [None]
